FAERS Safety Report 10998345 (Version 1)
Quarter: 2015Q2

REPORT INFORMATION
  Report Type: Spontaneous
  Country: ES (occurrence: None)
  Receive Date: 20150406
  Receipt Date: 20150406
  Transmission Date: 20150821
  Serious: Yes (Hospitalization)
  Sender: FDA-Public Use
  Company Number: ES-20150006

PATIENT
  Age: 67 Year
  Sex: Female

DRUGS (6)
  1. HEXABRIX [Suspect]
     Active Substance: IOXAGLATE MEGLUMINE\IOXAGLATE SODIUM
     Indication: SCAN WITH CONTRAST
     Dosage: (1 IN 1 TOTAL)
     Dates: start: 20140630, end: 20140630
  2. CEFTAZIDIMA (CEFTAZIDIME) [Suspect]
     Active Substance: CEFTAZIDIME
     Indication: PYELONEPHRITIS
     Dosage: 1 D ?
     Route: 042
     Dates: start: 20140630, end: 20140703
  3. AMPICILINA [Suspect]
     Active Substance: AMPICILLIN
     Indication: PYELONEPHRITIS
     Dosage: 1D
     Route: 042
     Dates: start: 20140630, end: 20140703
  4. BEMIPARINA (BEMIPARIN) [Concomitant]
  5. METAMIZOL [Suspect]
     Active Substance: METAMIZOLE SODIUM
     Indication: ANALGESIC THERAPY
     Dates: start: 20140701, end: 20140702
  6. OMEPRAZOL (OMEPRAZOLE) [Concomitant]

REACTIONS (2)
  - Rash erythematous [None]
  - Toxic skin eruption [None]

NARRATIVE: CASE EVENT DATE: 20140702
